FAERS Safety Report 6963261-0 (Version None)
Quarter: 2010Q3

REPORT INFORMATION
  Report Type: 
  Country: None (occurrence: None)
  Receive Date: 20100902
  Receipt Date: 20100825
  Transmission Date: 20110219
  Serious: Yes (Life-Threatening, Hospitalization)
  Sender: FDA-Public Use
  Company Number: JP-MERCK-1008USA01053

PATIENT
  Age: 60 Year
  Sex: Female
  Weight: 44 kg

DRUGS (11)
  1. HYZAAR [Suspect]
     Indication: HYPERTENSION
     Route: 048
     Dates: start: 20100201, end: 20100804
  2. ZYLORIC [Concomitant]
     Indication: HYPERURICAEMIA
     Route: 048
     Dates: start: 20100513
  3. ADALAT CC [Concomitant]
     Indication: HYPERTENSION
     Route: 048
     Dates: start: 20070101, end: 20100804
  4. ALFAROL [Concomitant]
     Indication: OSTEOPOROSIS
     Route: 048
     Dates: start: 20100501, end: 20100804
  5. SODIUM BICARBONATE [Concomitant]
     Indication: ACIDOSIS
     Route: 048
     Dates: start: 20100720, end: 20100804
  6. FLUCONAZOLE [Suspect]
     Indication: PROPHYLAXIS
     Route: 048
     Dates: start: 20100804
  7. LEVOFLOXACIN [Suspect]
     Indication: PROPHYLAXIS
     Route: 048
     Dates: start: 20100804, end: 20100804
  8. LEVOFLOXACIN [Suspect]
     Route: 048
     Dates: start: 20100805
  9. MAXIPIME [Suspect]
     Dosage: DAILY DOSAGE UNKNOWN
     Route: 042
  10. DOXAZOSIN MESYLATE [Concomitant]
     Indication: HYPERTENSION
     Route: 048
     Dates: start: 20100201
  11. COTRIM [Concomitant]
     Indication: PROPHYLAXIS
     Dosage: DIVIDED DOSE FREQUENCY U
     Route: 048
     Dates: start: 20100804

REACTIONS (4)
  - DRUG ERUPTION [None]
  - FEBRILE NEUTROPENIA [None]
  - HEPATIC FUNCTION ABNORMAL [None]
  - LEUKOPENIA [None]
